FAERS Safety Report 20443080 (Version 2)
Quarter: 2022Q1

REPORT INFORMATION
  Report Type: Spontaneous
  Country: US (occurrence: US)
  Receive Date: 20220208
  Receipt Date: 20220215
  Transmission Date: 20220423
  Serious: Yes (Hospitalization, Other)
  Sender: FDA-Public Use
  Company Number: US-BAYER-2022A017250

PATIENT
  Age: 64 Year
  Sex: Male

DRUGS (1)
  1. ASPIRIN [Suspect]
     Active Substance: ASPIRIN
     Dosage: UNK, QD (DAILY)

REACTIONS (3)
  - Haematemesis [None]
  - Melaena [None]
  - Gastrointestinal ulcer haemorrhage [None]
